FAERS Safety Report 7905247-5 (Version None)
Quarter: 2011Q4

REPORT INFORMATION
  Report Type: 
  Country: None (occurrence: None)
  Receive Date: 20111109
  Receipt Date: 20111031
  Transmission Date: 20120403
  Serious: Yes (Other)
  Sender: FDA-Public Use
  Company Number: US-COVIDIEN/TYCO HEALTHCARE/MALLINCKRODT-T201102297

PATIENT
  Sex: Female

DRUGS (4)
  1. EXALGO [Suspect]
     Indication: BACK PAIN
     Dosage: 12 MG, 2 TABS PER DAY
     Dates: start: 20111028, end: 20111029
  2. TRAZODONE HYDROCHLORIDE [Concomitant]
     Dosage: 50 MG, TID
  3. DILAUDID [Concomitant]
     Indication: BREAKTHROUGH PAIN
     Dosage: 8 MG, MAX OF 3 PER DAY
     Dates: start: 20111028
  4. DILAUDID [Concomitant]
     Dosage: 8 MG, Q 4 HOURS, TOTAL 48 MG PER DAY

REACTIONS (3)
  - URINARY RETENTION [None]
  - DRUG INEFFECTIVE [None]
  - SWELLING FACE [None]
